FAERS Safety Report 4931516-7 (Version None)
Quarter: 2006Q1

REPORT INFORMATION
  Report Type: 
  Country: None (occurrence: None)
  Receive Date: 20060303
  Receipt Date: 20060220
  Transmission Date: 20060701
  Serious: Yes (Hospitalization)
  Sender: FDA-Public Use
  Company Number: DE-AMGEN-UK169802

PATIENT
  Sex: Female

DRUGS (4)
  1. NEULASTA - PREFILLED SYRINGE [Suspect]
     Indication: CHEMOTHERAPY
     Route: 065
  2. DOCETAXEL [Concomitant]
     Route: 065
  3. DOXORUBICIN HCL [Concomitant]
     Route: 065
  4. CYCLOPHOSPHAMIDE [Concomitant]
     Route: 065

REACTIONS (3)
  - BONE PAIN [None]
  - LEUKOCYTOSIS [None]
  - PAIN [None]
